FAERS Safety Report 6935485-X (Version None)
Quarter: 2010Q3

REPORT INFORMATION
  Report Type: 
  Country: None (occurrence: None)
  Receive Date: 20100823
  Receipt Date: 20100812
  Transmission Date: 20110219
  Serious: No
  Sender: FDA-Public Use
  Company Number: US-BIOGENIDEC-2010BI028127

PATIENT
  Age: 54 Year
  Sex: Female

DRUGS (2)
  1. TYSABRI [Suspect]
     Indication: MULTIPLE SCLEROSIS
     Route: 042
     Dates: start: 20080714, end: 20080916
  2. TYSABRI [Suspect]
     Route: 042
     Dates: start: 20090807

REACTIONS (4)
  - ABDOMINAL DISCOMFORT [None]
  - GAIT DISTURBANCE [None]
  - HYPOAESTHESIA [None]
  - STRESS [None]
